FAERS Safety Report 6732757-9 (Version None)
Quarter: 2010Q2

REPORT INFORMATION
  Report Type: 
  Country: None (occurrence: None)
  Receive Date: 20100519
  Receipt Date: 20100511
  Transmission Date: 20101027
  Serious: Yes (Other)
  Sender: FDA-Public Use
  Company Number: US-AMGEN-QUU411949

PATIENT
  Age: 48 Year
  Sex: Male
  Weight: 65.8 kg

DRUGS (6)
  1. ARANESP [Suspect]
     Indication: RENAL FAILURE CHRONIC
     Dates: start: 20050101
  2. COZAAR [Concomitant]
  3. ENALAPRIL [Concomitant]
  4. UNSPECIFIED MEDICATION [Concomitant]
  5. ALLOPURINOL [Concomitant]
  6. IRON [Concomitant]

REACTIONS (5)
  - FABRY'S DISEASE [None]
  - FATIGUE [None]
  - HAEMOGLOBIN DECREASED [None]
  - HYPOXIA [None]
  - RENAL FAILURE [None]
